FAERS Safety Report 5428678-4 (Version None)
Quarter: 2007Q3

REPORT INFORMATION
  Report Type: 
  Country: None (occurrence: None)
  Receive Date: 20070828
  Receipt Date: 20070814
  Transmission Date: 20080115
  Serious: Yes (Hospitalization)
  Sender: FDA-Public Use
  Company Number: US-SHR-US-2007-001407

PATIENT
  Age: 53 Year
  Sex: Female
  Weight: 79.365 kg

DRUGS (6)
  1. BETASERON [Suspect]
     Indication: RELAPSING-REMITTING MULTIPLE SCLEROSIS
     Dosage: 8 MIU, EVERY 2D
     Route: 058
     Dates: start: 20060914, end: 20070301
  2. BETASERON [Suspect]
     Dosage: 8 MIU, EVERY 2D
     Route: 058
     Dates: start: 20070301
  3. ANALGESICS [Concomitant]
  4. TEGRETOL [Concomitant]
     Indication: FACIAL PAIN
     Dosage: UNK, 3X/DAY
     Route: 048
  5. CLONAZEPAM [Concomitant]
     Indication: FACIAL PAIN
     Dosage: .25 MG, BED T.
     Route: 048
  6. CORTICOSTEROIDS [Concomitant]
     Dates: start: 20070301, end: 20070301

REACTIONS (9)
  - CEREBROVASCULAR ACCIDENT [None]
  - FALL [None]
  - HEAD INJURY [None]
  - INFLUENZA LIKE ILLNESS [None]
  - INJECTION SITE RASH [None]
  - MULTIPLE SCLEROSIS [None]
  - PYREXIA [None]
  - SKIN LACERATION [None]
  - SYNCOPE [None]
